FAERS Safety Report 6838081-8 (Version None)
Quarter: 2010Q3

REPORT INFORMATION
  Report Type: 
  Country: None (occurrence: None)
  Receive Date: 20100713
  Receipt Date: 20070529
  Transmission Date: 20110219
  Serious: No
  Sender: FDA-Public Use
  Company Number: US-PFIZER INC-2007045580

PATIENT
  Age: 63 Year
  Sex: Female
  Weight: 59 kg

DRUGS (7)
  1. CHANTIX [Suspect]
     Indication: SMOKING CESSATION THERAPY
     Dates: start: 20070516
  2. LIPITOR [Concomitant]
  3. MIACALCIN [Concomitant]
  4. DIAZEPAM [Concomitant]
  5. LUNESTA [Concomitant]
  6. TALWIN [Concomitant]
  7. DEMEROL [Concomitant]

REACTIONS (2)
  - COUGH [None]
  - DYSGEUSIA [None]
